FAERS Safety Report 4706572-1 (Version None)
Quarter: 2005Q3

REPORT INFORMATION
  Report Type: 
  Country: None (occurrence: None)
  Receive Date: 20050705
  Receipt Date: 20050628
  Transmission Date: 20060218
  Serious: Yes (Death, Hospitalization)
  Sender: FDA-Public Use
  Company Number: 200515996GDDC

PATIENT
  Age: 61 Year
  Sex: Male

DRUGS (9)
  1. TAXOTERE [Suspect]
     Indication: NON-SMALL CELL LUNG CANCER
     Dosage: DOSE: UNK
     Route: 042
     Dates: start: 20050415, end: 20050415
  2. LANOXIN [Concomitant]
     Dates: start: 20020801
  3. MONOCOR [Concomitant]
     Dates: start: 20020801
  4. ZOPICLONE [Concomitant]
     Dates: start: 20020801
  5. NOVO-METFORMIN [Concomitant]
     Dates: start: 20020801, end: 20050421
  6. ASPIRIN [Concomitant]
     Dates: start: 20020801, end: 20050421
  7. ALTACE [Concomitant]
     Dates: start: 20020801
  8. TYLENOL [Concomitant]
     Dates: start: 20040101
  9. ISONIAZID [Concomitant]
     Dates: start: 20041001

REACTIONS (13)
  - ABDOMINAL PAIN [None]
  - ANOREXIA [None]
  - CHILLS [None]
  - CONFUSIONAL STATE [None]
  - DIARRHOEA [None]
  - FEBRILE NEUTROPENIA [None]
  - LUNG INFILTRATION [None]
  - MALAISE [None]
  - NAUSEA [None]
  - PULMONARY HAEMORRHAGE [None]
  - RESPIRATORY FAILURE [None]
  - TUMOUR NECROSIS [None]
  - VOMITING [None]
